FAERS Safety Report 7580309-3 (Version None)
Quarter: 2011Q2

REPORT INFORMATION
  Report Type: 
  Country: None (occurrence: None)
  Receive Date: 20110629
  Receipt Date: 20110623
  Transmission Date: 20111010
  Serious: Yes (Hospitalization)
  Sender: FDA-Public Use
  Company Number: US-ROCHE-777193

PATIENT
  Sex: Male

DRUGS (4)
  1. RIBAVIRIN [Suspect]
     Indication: HEPATITIS C
     Route: 065
     Dates: start: 20110128
  2. RIBAVIRIN [Suspect]
     Route: 065
     Dates: start: 20110401
  3. PEGINTERFERON ALFA-2A [Suspect]
     Dosage: DOSE REDUCED
     Route: 065
     Dates: start: 20110401
  4. PEGINTERFERON ALFA-2A [Suspect]
     Indication: HEPATITIS C
     Dosage: FORM: PRE-FILLED SYRINGE
     Route: 065
     Dates: start: 20110128

REACTIONS (5)
  - ILL-DEFINED DISORDER [None]
  - DRUG DOSE OMISSION [None]
  - WHITE BLOOD CELL COUNT DECREASED [None]
  - ANAEMIA [None]
  - FATIGUE [None]
